FAERS Safety Report 25635291 (Version 1)
Quarter: 2025Q3

REPORT INFORMATION
  Report Type: Spontaneous
  Country: TR (occurrence: TR)
  Receive Date: 20250802
  Receipt Date: 20250802
  Transmission Date: 20251020
  Serious: Yes (Other)
  Sender: EPIC PHARM
  Company Number: TR-EPICPHARMA-TR-2025EPCLIT00870

PATIENT
  Age: 17 Year

DRUGS (2)
  1. DICLOFENAC SODIUM [Suspect]
     Active Substance: DICLOFENAC SODIUM
     Indication: Product used for unknown indication
     Route: 065
  2. KETOPROFEN [Suspect]
     Active Substance: KETOPROFEN
     Indication: Product used for unknown indication
     Route: 065

REACTIONS (2)
  - Angioedema [Unknown]
  - Urticaria [Unknown]
